FAERS Safety Report 25995118 (Version 1)
Quarter: 2025Q4

REPORT INFORMATION
  Report Type: Report from Study
  Country: US (occurrence: US)
  Receive Date: 20251104
  Receipt Date: 20251104
  Transmission Date: 20260117
  Serious: Yes (Other)
  Sender: BIOCODEX
  Company Number: US-BIOCODEX2-2025001484

PATIENT
  Age: 7 Year
  Sex: Male
  Weight: 20.4 kg

DRUGS (10)
  1. DIACOMIT [Suspect]
     Active Substance: STIRIPENTOL
     Indication: Lennox-Gastaut syndrome
     Dosage: DAYS 1-15: TAKE 250MG (ONE OF THE 250MG POWDER FOR SUSPENSION PACKETS DISSOLVED IN 10ML OF WATER) BY MOUTH TWICE DAILY
     Dates: start: 20250919
  2. DIACOMIT [Suspect]
     Active Substance: STIRIPENTOL
     Dosage: DAYS 16 AND THEREAFTER: TAKE 500MG (TWO OF THE 250MG POWDER FOR SUSPENSION PACKETS DISSOLVED IN 20ML OF WATER) TWICE DAILY, ORALLY
     Dates: start: 20250919
  3. DIACOMIT [Suspect]
     Active Substance: STIRIPENTOL
     Route: 048
  4. DIACOMIT [Suspect]
     Active Substance: STIRIPENTOL
     Route: 048
  5. CLOBAZAM [Concomitant]
     Active Substance: CLOBAZAM
     Indication: Product used for unknown indication
  6. CLOBAZAM [Concomitant]
     Active Substance: CLOBAZAM
  7. EPIDIOLEX [Concomitant]
     Active Substance: CANNABIDIOL
     Indication: Product used for unknown indication
  8. EPIDIOLEX [Concomitant]
     Active Substance: CANNABIDIOL
  9. FYCOMPA [Concomitant]
     Active Substance: PERAMPANEL
     Indication: Product used for unknown indication
  10. FYCOMPA [Concomitant]
     Active Substance: PERAMPANEL

REACTIONS (5)
  - Off label use [Unknown]
  - Product preparation issue [Unknown]
  - Seizure [Unknown]
  - Drug ineffective for unapproved indication [Unknown]
  - Drooling [Unknown]

NARRATIVE: CASE EVENT DATE: 20250919
